FAERS Safety Report 21308768 (Version 4)
Quarter: 2022Q4

REPORT INFORMATION
  Report Type: Report from Study
  Country: CN (occurrence: CN)
  Receive Date: 20220908
  Receipt Date: 20221013
  Transmission Date: 20230113
  Serious: Yes (Death, Other)
  Sender: FDA-Public Use
  Company Number: CN-BRISTOL-MYERS SQUIBB COMPANY-2022-098767

PATIENT
  Age: 74 Year
  Sex: Female
  Weight: 70.5 kg

DRUGS (7)
  1. LENALIDOMIDE [Suspect]
     Active Substance: LENALIDOMIDE
     Indication: Follicular lymphoma
     Dosage: ON 21/AUG/2022, SHE RECEIVED THE MOST RECENT DOSE OF LENALIDOMIDE (20 MG) PRIOR TO AE AND SAE ONSET
     Route: 048
     Dates: start: 20220707, end: 20220821
  2. MOSUNETUZUMAB [Suspect]
     Active Substance: MOSUNETUZUMAB
     Indication: Follicular lymphoma
     Route: 058
     Dates: start: 20220614
  3. MOSUNETUZUMAB [Suspect]
     Active Substance: MOSUNETUZUMAB
     Dosage: ON 02/AUG/2022 AT 12:21 PM, SHE RECEIVED THE MOST RECENT DOSE OF MOSUNETUZUMAB (45 MG) PRIOR TO AE A
     Route: 058
     Dates: end: 20220802
  4. PSEUDOEPHEDRINE HYDROCHLORIDE [Concomitant]
     Active Substance: PSEUDOEPHEDRINE HYDROCHLORIDE
     Indication: Influenza
     Dosage: 1 DF,1 IN 1 D
     Route: 048
     Dates: start: 20220820, end: 20220821
  5. DEXAMETHASONE ACETATE [Concomitant]
     Active Substance: DEXAMETHASONE ACETATE
     Indication: Allergy prophylaxis
     Dosage: 1 IN 1 AS REQUIRED
     Route: 048
     Dates: start: 20220802, end: 20220802
  6. NIFEDIPINE [Concomitant]
     Active Substance: NIFEDIPINE
     Indication: Hypertension
     Dosage: 3 IN 1 D
     Route: 048
     Dates: start: 2002
  7. DIPHENHYDRAMINE [Concomitant]
     Active Substance: DIPHENHYDRAMINE
     Indication: Allergy prophylaxis
     Dosage: 1 IN 1 AS REQUIRED
     Route: 030
     Dates: start: 20220802, end: 20220802

REACTIONS (1)
  - Respiratory failure [Fatal]

NARRATIVE: CASE EVENT DATE: 20220821
